FAERS Safety Report 7108987-3 (Version None)
Quarter: 2010Q4

REPORT INFORMATION
  Report Type: 
  Country: None (occurrence: None)
  Receive Date: 20101112
  Receipt Date: 20101105
  Transmission Date: 20110411
  Serious: Yes (Death, Life-Threatening)
  Sender: FDA-Public Use
  Company Number: CN-JNJFOC-20101004808

PATIENT
  Age: 35 Year
  Sex: Male
  Weight: 71 kg

DRUGS (1)
  1. DECITABINE (DECITABINE) LYOPHILIZED POWDER [Suspect]
     Indication: MYELODYSPLASTIC SYNDROME
     Dosage: 36.5 MG, 1 IN 1 DAY, INTRAVENOUS
     Route: 042
     Dates: start: 20100925, end: 20100929

REACTIONS (14)
  - AGRANULOCYTOSIS [None]
  - ASTHMA [None]
  - CARDIAC FAILURE [None]
  - HAEMOPTYSIS [None]
  - HAEMORRHAGE [None]
  - HEART RATE INCREASED [None]
  - LOWER RESPIRATORY TRACT INFECTION FUNGAL [None]
  - LUNG INFECTION [None]
  - ORTHOPNOEA [None]
  - OXYGEN SATURATION DECREASED [None]
  - PULMONARY HAEMORRHAGE [None]
  - RESPIRATORY FAILURE [None]
  - RESPIRATORY RATE INCREASED [None]
  - SEPTIC SHOCK [None]
